FAERS Safety Report 7502344-3 (Version None)
Quarter: 2011Q2

REPORT INFORMATION
  Report Type: 
  Country: None (occurrence: None)
  Receive Date: 20110523
  Receipt Date: 20110523
  Transmission Date: 20111010
  Serious: No
  Sender: FDA-Public Use
  Company Number: None

PATIENT
  Age: 58 Year
  Sex: Female
  Weight: 68.0396 kg

DRUGS (2)
  1. TEMAZEPAM [Suspect]
     Indication: INSOMNIA
     Dosage: 1 CAPSULE DAILY BUCCAL
     Route: 002
     Dates: start: 20110512, end: 20110512
  2. TEMAZEPAM [Suspect]
     Indication: DEPRESSION
     Dosage: 1 CAPSULE DAILY BUCCAL
     Route: 002
     Dates: start: 20110512, end: 20110512

REACTIONS (2)
  - DRUG EFFECT DECREASED [None]
  - PRODUCT SUBSTITUTION ISSUE [None]
